FAERS Safety Report 16762456 (Version 1)
Quarter: 2019Q3

REPORT INFORMATION
  Report Type: Spontaneous
  Country: GB (occurrence: GB)
  Receive Date: 20190831
  Receipt Date: 20190831
  Transmission Date: 20191005
  Serious: Yes (Life-Threatening, Hospitalization, Disabling, Other)
  Sender: FDA-Public Use
  Company Number: GB-ACCORD-153328

PATIENT
  Age: 43 Year
  Sex: Female
  Weight: 73.9 kg

DRUGS (10)
  1. RANITIDINE. [Concomitant]
     Active Substance: RANITIDINE
  2. CHLORPHENAMINE/CHLORPHENAMINE MALEATE/CHLORPHENAMINE RESINATE/CHLORPHENAMINE TANNATE [Concomitant]
  3. DEXAMETHASONE. [Concomitant]
     Active Substance: DEXAMETHASONE
  4. FLUCONAZOLE. [Concomitant]
     Active Substance: FLUCONAZOLE
  5. TRASTUZUMAB. [Concomitant]
     Active Substance: TRASTUZUMAB
  6. PACLITAXEL/PACLITAXEL LIPOSOME [Suspect]
     Active Substance: PACLITAXEL
     Indication: ADJUVANT THERAPY
     Dosage: 141MG (80MG/M2)
     Route: 042
     Dates: start: 20190604, end: 20190718
  7. HYDROCORTISONE. [Concomitant]
     Active Substance: HYDROCORTISONE
  8. DOMPERIDONE [Concomitant]
     Active Substance: DOMPERIDONE
  9. EPIRUBICIN [Concomitant]
     Active Substance: EPIRUBICIN
  10. FLUOROURACIL. [Concomitant]
     Active Substance: FLUOROURACIL

REACTIONS (6)
  - Acute interstitial pneumonitis [Recovered/Resolved with Sequelae]
  - Lymphopenia [Unknown]
  - Pyrexia [Unknown]
  - Fatigue [Unknown]
  - Dyspnoea [Unknown]
  - Malaise [Unknown]

NARRATIVE: CASE EVENT DATE: 201907
